FAERS Safety Report 5959628-X (Version None)
Quarter: 2008Q4

REPORT INFORMATION
  Report Type: 
  Country: None (occurrence: None)
  Receive Date: 20081120
  Receipt Date: 20081105
  Transmission Date: 20090506
  Serious: Yes (Hospitalization)
  Sender: FDA-Public Use
  Company Number: US-BIOGENIDEC-2008BI022473

PATIENT
  Age: 61 Year
  Sex: Male
  Weight: 89 kg

DRUGS (17)
  1. TYSABRI [Suspect]
     Indication: MULTIPLE SCLEROSIS
     Route: 042
     Dates: start: 20080516, end: 20080710
  2. PREDNISONE TAB [Concomitant]
  3. SEROQUEL [Concomitant]
     Indication: SLEEP DISORDER
  4. SEROQUEL [Concomitant]
  5. DIAZEPAM [Concomitant]
  6. LITHIUM [Concomitant]
  7. HYDROCODONE BITARTRATE [Concomitant]
  8. PLAVIX [Concomitant]
     Indication: CORONARY ARTERY BYPASS
  9. CLONAZEPAM [Concomitant]
  10. AMITRIPTYLINE HCL [Concomitant]
  11. LEVITRA [Concomitant]
  12. AVAPRO [Concomitant]
  13. ATENOLOL [Concomitant]
  14. OXYBUTYNIN CHLORIDE [Concomitant]
  15. RANITIDINE HYDROCHLORIDE [Concomitant]
  16. TEMAZEPAM [Concomitant]
  17. LIPITOR [Concomitant]

REACTIONS (11)
  - ANAEMIA [None]
  - CEREBRAL ATROPHY [None]
  - DEMENTIA [None]
  - DRUG DEPENDENCE [None]
  - ENCEPHALOPATHY [None]
  - FALL [None]
  - GASTROENTERITIS SALMONELLA [None]
  - HAEMOCONCENTRATION [None]
  - MEMORY IMPAIRMENT [None]
  - OVERDOSE [None]
  - RENAL FAILURE [None]
